FAERS Safety Report 14056517 (Version 1)
Quarter: 2017Q4

REPORT INFORMATION
  Report Type: Spontaneous
  Country: TW (occurrence: TW)
  Receive Date: 20171006
  Receipt Date: 20171006
  Transmission Date: 20180321
  Serious: Yes (Death)
  Sender: FDA-Public Use
  Company Number: TW-ROCHE-2002463

PATIENT
  Age: 87 Year
  Sex: Male

DRUGS (1)
  1. XELODA [Suspect]
     Active Substance: CAPECITABINE
     Indication: COLON CANCER RECURRENT
     Route: 065
     Dates: start: 20120511, end: 20120810

REACTIONS (1)
  - Death [Fatal]

NARRATIVE: CASE EVENT DATE: 20131001
